FAERS Safety Report 4357848-1 (Version None)
Quarter: 2004Q2

REPORT INFORMATION
  Report Type: 
  Country: None (occurrence: None)
  Receive Date: 20040510
  Receipt Date: 20040422
  Transmission Date: 20050107
  Serious: Yes (Hospitalization)
  Sender: FDA-Public Use
  Company Number: 186018

PATIENT
  Age: 75 Year
  Sex: Female

DRUGS (6)
  1. AVONEX [Suspect]
     Indication: MULTIPLE SCLEROSIS
     Dosage: 30 MCG QW IM
     Dates: start: 20020411
  2. PROVIGIL [Concomitant]
  3. IMDUR [Concomitant]
  4. ASPIRIN [Concomitant]
  5. LIPITOR [Concomitant]
  6. ATENOLOL [Concomitant]

REACTIONS (19)
  - ARTERIOSPASM CORONARY [None]
  - ASTHENIA [None]
  - CARDIAC FAILURE CONGESTIVE [None]
  - CARDIOMYOPATHY [None]
  - CHRONIC OBSTRUCTIVE AIRWAYS DISEASE [None]
  - CONGENITAL ATRIAL SEPTAL DEFECT [None]
  - CORONARY ARTERY DISEASE [None]
  - DEPRESSION [None]
  - DUODENAL ULCER [None]
  - EJECTION FRACTION DECREASED [None]
  - ELECTROCARDIOGRAM ST SEGMENT ABNORMAL [None]
  - GASTRITIS [None]
  - LOSS OF CONSCIOUSNESS [None]
  - MYOCARDIAL ISCHAEMIA [None]
  - NERVOUS SYSTEM DISORDER [None]
  - PERFORMANCE STATUS DECREASED [None]
  - RESPIRATORY FAILURE [None]
  - THERAPEUTIC AGENT TOXICITY [None]
  - VENTRICULAR EXTRASYSTOLES [None]
